FAERS Safety Report 6007108-8 (Version None)
Quarter: 2008Q4

REPORT INFORMATION
  Report Type: 
  Country: None (occurrence: None)
  Receive Date: 20081217
  Receipt Date: 20080131
  Transmission Date: 20090506
  Serious: No
  Sender: FDA-Public Use
  Company Number: US-ASTRAZENECA-2008UW00970

PATIENT
  Age: 71 Year
  Sex: Male
  Weight: 77.3 kg

DRUGS (6)
  1. CRESTOR [Suspect]
     Indication: BLOOD CHOLESTEROL INCREASED
     Route: 048
     Dates: start: 20071219
  2. CRESTOR [Suspect]
     Indication: HYPERLIPIDAEMIA
     Route: 048
     Dates: start: 20071219
  3. ASPIRIN [Concomitant]
     Indication: CORONARY ARTERY DISEASE
     Route: 048
  4. ATENOLOL [Concomitant]
     Indication: CORONARY ARTERY DISEASE
     Route: 048
  5. HYZAAR [Concomitant]
     Indication: CORONARY ARTERY DISEASE
     Dosage: 25/100 MG
     Route: 048
  6. HYZAAR [Concomitant]
     Indication: HYPERTENSION
     Dosage: 25/100 MG
     Route: 048

REACTIONS (1)
  - DYSPEPSIA [None]
